APPROVED DRUG PRODUCT: ISOVUE-128
Active Ingredient: IOPAMIDOL
Strength: 26%
Dosage Form/Route: INJECTABLE;INJECTION
Application: N018735 | Product #005
Applicant: BRACCO DIAGNOSTICS INC
Approved: Oct 21, 1986 | RLD: No | RS: No | Type: DISCN